FAERS Safety Report 11380220 (Version 3)
Quarter: 2015Q3

REPORT INFORMATION
  Report Type: Spontaneous
  Country: MX (occurrence: MX)
  Receive Date: 20150814
  Receipt Date: 20150928
  Transmission Date: 20151125
  Serious: Yes (Other)
  Sender: FDA-Public Use
  Company Number: MX-MERCK-1508MEX004485

PATIENT
  Age: 59 Year
  Sex: Female

DRUGS (3)
  1. PEGTRON [Suspect]
     Active Substance: PEGINTERFERON ALFA-2B
     Indication: HEPATITIS C
     Dosage: UNKNOWN
  2. BOCEPREVIR [Suspect]
     Active Substance: BOCEPREVIR
     Indication: HEPATITIS C
     Dosage: UNKNOWN
     Route: 048
  3. RIBAVIRIN. [Suspect]
     Active Substance: RIBAVIRIN
     Indication: HEPATITIS C
     Dosage: UNK
     Route: 048

REACTIONS (5)
  - Hyperaemia [Recovered/Resolved]
  - Injection site erythema [Recovered/Resolved]
  - Injection site scab [Recovered/Resolved]
  - Erythema multiforme [Recovered/Resolved]
  - Injection site ulcer [Recovered/Resolved]

NARRATIVE: CASE EVENT DATE: 2015
